FAERS Safety Report 11136052 (Version 1)
Quarter: 2015Q2

REPORT INFORMATION
  Report Type: Spontaneous
  Country: US (occurrence: US)
  Receive Date: 20150526
  Receipt Date: 20150526
  Transmission Date: 20150821
  Serious: Yes (Hospitalization)
  Sender: FDA-Public Use
  Company Number: US-CELGENE-USA-2015053671

PATIENT
  Sex: Male

DRUGS (1)
  1. POMALYST [Suspect]
     Active Substance: POMALIDOMIDE
     Indication: MYCOSIS FUNGOIDES STAGE IV
     Route: 048
     Dates: start: 201409

REACTIONS (2)
  - Staphylococcal infection [Recovered/Resolved]
  - Graft versus host disease [Recovered/Resolved]
